FAERS Safety Report 13950485 (Version 1)
Quarter: 2017Q3

REPORT INFORMATION
  Report Type: Spontaneous
  Country: US (occurrence: US)
  Receive Date: 20170908
  Receipt Date: 20170908
  Transmission Date: 20171128
  Serious: No
  Sender: FDA-Public Use
  Company Number: US-ASTRAZENECA-2014SE64652

PATIENT
  Sex: Female

DRUGS (5)
  1. ZOMIG ZMT [Suspect]
     Active Substance: ZOLMITRIPTAN
     Indication: MIGRAINE
     Dosage: 2 ZOMIG ZMT 5MG TABLETS ON DAY 1, AND TOOK ANOTHER 2 TABLETS ON DAY 3.
     Route: 048
     Dates: start: 20130726
  2. TOPAMAX [Concomitant]
     Active Substance: TOPIRAMATE
     Indication: STRESS
  3. TOPAMAX [Concomitant]
     Active Substance: TOPIRAMATE
     Indication: AFFECTIVE DISORDER
  4. ZOMIG ZMT [Suspect]
     Active Substance: ZOLMITRIPTAN
     Indication: MIGRAINE
     Dosage: TWO 5MG TABLETS ON DAY 1, AND TOOK ANOTHER 2 TABLETS ON DAY 3
     Route: 048
  5. TOPAMAX [Concomitant]
     Active Substance: TOPIRAMATE
     Indication: HEADACHE

REACTIONS (4)
  - Headache [Unknown]
  - Hypoaesthesia [Unknown]
  - Drug ineffective [Unknown]
  - Vitamin B12 deficiency [Unknown]
